FAERS Safety Report 11718092 (Version 2)
Quarter: 2015Q4

REPORT INFORMATION
  Report Type: Report from Study
  Country: US (occurrence: US)
  Receive Date: 20151110
  Receipt Date: 20151126
  Transmission Date: 20160304
  Serious: No
  Sender: FDA-Public Use
  Company Number: US-AMGEN-USASL2015115090

PATIENT
  Age: 46 Year
  Sex: Male

DRUGS (1)
  1. ENBREL [Suspect]
     Active Substance: ETANERCEPT
     Indication: RHEUMATOID ARTHRITIS
     Dosage: 50 MG, QWK
     Route: 065
     Dates: start: 20151002

REACTIONS (10)
  - Pruritus [Recovering/Resolving]
  - Erythema [Recovering/Resolving]
  - Injection site pain [Not Recovered/Not Resolved]
  - Injection site haemorrhage [Not Recovered/Not Resolved]
  - Injection site bruising [Not Recovered/Not Resolved]
  - Blister [Recovering/Resolving]
  - Abdominal pain upper [Unknown]
  - Chest pain [Unknown]
  - Muscle strain [Unknown]
  - Skin irritation [Recovering/Resolving]

NARRATIVE: CASE EVENT DATE: 2015
